FAERS Safety Report 10513971 (Version 1)
Quarter: 2014Q4

REPORT INFORMATION
  Report Type: Spontaneous
  Country: US (occurrence: US)
  Receive Date: 20141013
  Receipt Date: 20141013
  Transmission Date: 20150528
  Serious: Yes (Other)
  Sender: FDA-Public Use
  Company Number: PHHY2014US130541

PATIENT
  Age: 35 Month
  Sex: Female

DRUGS (4)
  1. CARBOPLATIN. [Suspect]
     Active Substance: CARBOPLATIN
     Indication: NEUROFIBROMATOSIS
     Route: 065
  2. CARBOPLATIN. [Suspect]
     Active Substance: CARBOPLATIN
     Indication: OPTIC GLIOMA
  3. VINCRISTINE [Suspect]
     Active Substance: VINCRISTINE
     Indication: NEUROFIBROMATOSIS
     Route: 065
  4. VINCRISTINE [Suspect]
     Active Substance: VINCRISTINE
     Indication: OPTIC GLIOMA

REACTIONS (12)
  - Neurofibromatosis [Unknown]
  - Optic glioma [Unknown]
  - Haemolytic anaemia [Recovered/Resolved]
  - Hypersensitivity [Unknown]
  - Abdominal pain [Unknown]
  - Chromaturia [Recovered/Resolved]
  - Reticulocyte count increased [Recovered/Resolved]
  - Red blood cell spherocytes present [Recovered/Resolved]
  - Haptoglobin decreased [Recovered/Resolved]
  - Malignant neoplasm progression [Unknown]
  - Haemoglobin decreased [Recovered/Resolved]
  - Back pain [Unknown]
